FAERS Safety Report 7250023-2 (Version None)
Quarter: 2011Q1

REPORT INFORMATION
  Report Type: 
  Country: None (occurrence: None)
  Receive Date: 20110128
  Receipt Date: 20110121
  Transmission Date: 20110831
  Serious: Yes (Life-Threatening)
  Sender: FDA-Public Use
  Company Number: IT-EISAI INC-E7389-01005-CLI-IT

PATIENT
  Sex: Male
  Weight: 94 kg

DRUGS (13)
  1. PEMETREXED [Suspect]
     Indication: NON-SMALL CELL LUNG CANCER
     Route: 041
     Dates: start: 20100721
  2. AUGMENTIN '125' [Concomitant]
     Indication: SKIN INFECTION
     Route: 048
     Dates: start: 20100827
  3. DEXAMETHASONE [Concomitant]
     Route: 048
     Dates: start: 20100720, end: 20100721
  4. HYDROXINE [Concomitant]
     Indication: RASH
     Route: 048
     Dates: start: 20100824
  5. FENTANYL [Concomitant]
     Indication: PAIN
     Route: 048
     Dates: start: 20100622
  6. DEXAMETHASONE [Concomitant]
     Route: 048
     Dates: start: 20100824, end: 20100824
  7. DEXAMETHASONE [Concomitant]
     Indication: ADJUVANT THERAPY
     Route: 048
     Dates: start: 20100513, end: 20100707
  8. PREGABALIN [Concomitant]
     Indication: PAIN
     Route: 048
     Dates: start: 20100622
  9. FUROSEMIDE [Concomitant]
     Indication: OEDEMA
     Route: 048
     Dates: start: 20100810
  10. E7389 (BOLD) [Suspect]
     Indication: NON-SMALL CELL LUNG CANCER
     Route: 041
     Dates: start: 20100721
  11. FOLIC ACID [Concomitant]
     Indication: PROPHYLAXIS
     Route: 048
     Dates: start: 20100708
  12. DEXAMETHASONE [Concomitant]
     Route: 048
     Dates: start: 20100914, end: 20100916
  13. VITAMIN B-12 [Concomitant]
     Route: 048
     Dates: start: 20100922, end: 20100922

REACTIONS (2)
  - LEUKOPENIA [None]
  - NEUTROPENIA [None]
